FAERS Safety Report 11539170 (Version 2)
Quarter: 2015Q4

REPORT INFORMATION
  Report Type: Spontaneous
  Country: ES (occurrence: ES)
  Receive Date: 20150923
  Receipt Date: 20151006
  Transmission Date: 20160304
  Serious: Yes (Death, Hospitalization, Other)
  Sender: FDA-Public Use
  Company Number: ES-ROCHE-1637703

PATIENT
  Age: 75 Year
  Sex: Female

DRUGS (2)
  1. OXALIPLATIN. [Suspect]
     Active Substance: OXALIPLATIN
     Indication: COLORECTAL CANCER STAGE III
     Route: 065
  2. CAPECITABINE. [Suspect]
     Active Substance: CAPECITABINE
     Indication: COLORECTAL CANCER STAGE III
     Route: 048

REACTIONS (12)
  - Haematotoxicity [Unknown]
  - Febrile neutropenia [Unknown]
  - Infection [Unknown]
  - Respiratory tract infection [Unknown]
  - Cardiac ventricular thrombosis [Unknown]
  - Hypertensive crisis [Unknown]
  - Pneumonia [Fatal]
  - Urinary tract infection [Unknown]
  - Gastrointestinal toxicity [Unknown]
  - Bacteraemia [Unknown]
  - Encephalopathy [Unknown]
  - Glomerulonephritis [Unknown]
